FAERS Safety Report 6746833-8 (Version None)
Quarter: 2010Q2

REPORT INFORMATION
  Report Type: 
  Country: None (occurrence: None)
  Receive Date: 20100528
  Receipt Date: 20100222
  Transmission Date: 20101027
  Serious: No
  Sender: FDA-Public Use
  Company Number: A0845710A

PATIENT
  Sex: Female

DRUGS (5)
  1. VENTOLIN [Suspect]
     Indication: BRONCHITIS
     Dosage: 1PUFF FOUR TIMES PER DAY
     Route: 055
     Dates: start: 20100121
  2. AMBIEN [Concomitant]
  3. VITAMIN D [Concomitant]
  4. CYMBALTA [Concomitant]
  5. LEVICOR [Concomitant]

REACTIONS (3)
  - CHEST DISCOMFORT [None]
  - COUGH [None]
  - DRUG INEFFECTIVE [None]
